FAERS Safety Report 24835918 (Version 2)
Quarter: 2025Q1

REPORT INFORMATION
  Report Type: Spontaneous
  Country: US (occurrence: US)
  Receive Date: 20250113
  Receipt Date: 20250305
  Transmission Date: 20250409
  Serious: Yes (Other)
  Sender: SANOFI AVENTIS
  Company Number: US-SA-2025SA008552

PATIENT
  Age: 71 Year
  Sex: Female

DRUGS (3)
  1. DUPIXENT [Suspect]
     Active Substance: DUPILUMAB
     Indication: Neurodermatitis
     Dosage: 300 MG, QOW
     Route: 058
     Dates: start: 202410
  2. STELARA [Concomitant]
     Active Substance: USTEKINUMAB
  3. MIRTAZAPINE [Concomitant]
     Active Substance: MIRTAZAPINE

REACTIONS (6)
  - Crohn^s disease [Unknown]
  - Asthenia [Unknown]
  - Pain [Unknown]
  - Discomfort [Unknown]
  - Night sweats [Unknown]
  - Middle insomnia [Unknown]

NARRATIVE: CASE EVENT DATE: 20241201
